FAERS Safety Report 10146664 (Version 2)
Quarter: 2015Q1

REPORT INFORMATION
  Report Type: Spontaneous
  Country: GB (occurrence: None)
  Receive Date: 20140429
  Receipt Date: 20150223
  Transmission Date: 20150720
  Serious: Yes (Other)
  Sender: FDA-Public Use
  Company Number: 2014GB0193

PATIENT
  Age: 31 Year
  Sex: Male

DRUGS (15)
  1. CHLORHEXIDINE [Concomitant]
     Active Substance: CHLORHEXIDINE
  2. ENOXAPARIN [Concomitant]
     Active Substance: ENOXAPARIN
  3. HYDROCORTISON (HYDROCORTISONE) [Concomitant]
  4. GENTAMYCIN (GENTAMYCIN SULFATE) [Concomitant]
  5. MEROPENEM. [Concomitant]
     Active Substance: MEROPENEM
  6. PARACETAMOL [Concomitant]
     Active Substance: ACETAMINOPHEN
  7. AMBISOME [Concomitant]
     Active Substance: AMPHOTERICIN B
  8. COTRIMOXAZOLE [Concomitant]
     Active Substance: SULFAMETHOXAZOLE\TRIMETHOPRIM
  9. NIVESTIM (FILGRASTIM) [Concomitant]
  10. DIFFLAM (BENZYDAMINE HYDROCHLORIDE) [Concomitant]
  11. CIPROFLOXACIN. [Concomitant]
     Active Substance: CIPROFLOXACIN
  12. CODEINE PHOSPHATE [Concomitant]
     Active Substance: CODEINE PHOSPHATE
  13. ACICLOVIR [Concomitant]
     Active Substance: ACYCLOVIR
  14. PIRITON (CHLORPHENAMINE MALEATE) [Concomitant]
  15. KEPIVANCE [Suspect]
     Active Substance: PALIFERMIN
     Indication: STOMATITIS
     Route: 042
     Dates: start: 20130716, end: 20130716

REACTIONS (1)
  - Hypersensitivity [None]

NARRATIVE: CASE EVENT DATE: 20130717
